FAERS Safety Report 15565242 (Version 1)
Quarter: 2018Q4

REPORT INFORMATION
  Report Type: Report from Study
  Country: US (occurrence: US)
  Receive Date: 20181030
  Receipt Date: 20181030
  Transmission Date: 20190205
  Serious: Yes (Other)
  Sender: FDA-Public Use
  Company Number: US-UCBSA-2018038679

PATIENT

DRUGS (3)
  1. DILANTIN [Concomitant]
     Active Substance: PHENYTOIN
     Indication: SEIZURE
     Dosage: UNKNOWN DOSE
  2. DILANTIN [Concomitant]
     Active Substance: PHENYTOIN
     Dosage: DECREASED TO 200 MG
  3. LEVETIRACETAM. [Suspect]
     Active Substance: LEVETIRACETAM
     Indication: SEIZURE
     Dosage: UNK

REACTIONS (5)
  - Dizziness [Unknown]
  - Confusional state [Unknown]
  - Neuropathy peripheral [Unknown]
  - Lethargy [Unknown]
  - Osteoarthritis [Unknown]
